FAERS Safety Report 4355795-2 (Version None)
Quarter: 2004Q2

REPORT INFORMATION
  Report Type: 
  Country: None (occurrence: None)
  Receive Date: 20040505
  Receipt Date: 20040423
  Transmission Date: 20050107
  Serious: Yes (Other)
  Sender: FDA-Public Use
  Company Number: 2003124728

PATIENT
  Age: 69 Year
  Sex: Female
  Weight: 39.9165 kg

DRUGS (8)
  1. ZITHROMAX [Suspect]
     Indication: SINUSITIS
     Dates: end: 20040423
  2. CLAVULIN (CLAVULANATE POTASSIUM, AMOXICILLIN TRIHYDRATE) [Suspect]
     Indication: SINUSITIS
     Dates: start: 20031101
  3. ANTIBIOTICS (ANTIBIOTICS) [Suspect]
     Indication: SINUSITIS
  4. ESTRADIOL [Concomitant]
  5. LEVOTHYROXINE SODIUM [Concomitant]
  6. PANTOPRAZOLE (PANTOPRAZOLE) [Concomitant]
  7. BISACODYL (BISACODYL) [Concomitant]
  8. FLUTICASONE PROPIONATE [Concomitant]

REACTIONS (16)
  - BRONCHITIS [None]
  - CHEST DISCOMFORT [None]
  - DISEASE RECURRENCE [None]
  - EAR PAIN [None]
  - FEELING ABNORMAL [None]
  - HEADACHE [None]
  - IMMUNE SYSTEM DISORDER [None]
  - LUNG INFECTION [None]
  - PHARYNGOLARYNGEAL PAIN [None]
  - POSTOPERATIVE INFECTION [None]
  - PROCEDURAL COMPLICATION [None]
  - PRODUCTIVE COUGH [None]
  - PURULENT DISCHARGE [None]
  - SINUSITIS [None]
  - TENSION HEADACHE [None]
  - TOTAL LUNG CAPACITY ABNORMAL [None]
